FAERS Safety Report 23161359 (Version 1)
Quarter: 2023Q4

REPORT INFORMATION
  Report Type: Report from Study
  Country: CA (occurrence: CA)
  Receive Date: 20231108
  Receipt Date: 20231108
  Transmission Date: 20240110
  Serious: Yes (Other)
  Sender: FDA-Public Use
  Company Number: CA-HLS-202302494

PATIENT
  Age: 25 Year
  Sex: Male

DRUGS (5)
  1. CLOZARIL [Suspect]
     Active Substance: CLOZAPINE
     Indication: Product used for unknown indication
     Route: 048
     Dates: start: 20230928
  2. OLANZAPINE [Concomitant]
     Active Substance: OLANZAPINE
     Indication: Product used for unknown indication
     Route: 065
  3. ARIPIPRAZOLE [Concomitant]
     Active Substance: ARIPIPRAZOLE
     Indication: Product used for unknown indication
     Route: 065
  4. METFORMIN [Concomitant]
     Active Substance: METFORMIN HYDROCHLORIDE
     Indication: Product used for unknown indication
     Dosage: 500 MG TABLET, TAKE 1 TABLET TWICE A DAY
     Route: 065
  5. FLUOXETINE HYDROCHLORIDE [Concomitant]
     Active Substance: FLUOXETINE HYDROCHLORIDE
     Indication: Product used for unknown indication
     Dosage: 20 MG CAPSULE, TAKE 1 CAPSULE AT BEDTIME IN ADDITION TO OTHER STRENGTH.
     Route: 065

REACTIONS (13)
  - Blood pressure increased [Unknown]
  - Chest pain [Unknown]
  - C-reactive protein increased [Unknown]
  - Blood creatine phosphokinase increased [Unknown]
  - Dizziness [Unknown]
  - Influenza [Recovering/Resolving]
  - Heart rate increased [Unknown]
  - Blood lactate dehydrogenase increased [Unknown]
  - Myalgia [Unknown]
  - Red blood cell count increased [Unknown]
  - Dyspnoea [Unknown]
  - Electrocardiogram T wave amplitude decreased [Unknown]
  - Malaise [Unknown]

NARRATIVE: CASE EVENT DATE: 20231012
